FAERS Safety Report 9284776 (Version 1)
Quarter: 2013Q2

REPORT INFORMATION
  Report Type: Spontaneous
  Country: US (occurrence: US)
  Receive Date: 20130513
  Receipt Date: 20130513
  Transmission Date: 20140414
  Serious: No
  Sender: FDA-Public Use
  Company Number: US-BIOGENIDEC-2013BI041930

PATIENT
  Sex: Female

DRUGS (1)
  1. AVONEX [Suspect]
     Indication: MULTIPLE SCLEROSIS
     Route: 030
     Dates: start: 20030503

REACTIONS (6)
  - Musculoskeletal disorder [Unknown]
  - Memory impairment [Unknown]
  - Stress [Unknown]
  - Thyroid disorder [Unknown]
  - Headache [Unknown]
  - Paraesthesia [Unknown]
